FAERS Safety Report 13460855 (Version 2)
Quarter: 2017Q2

REPORT INFORMATION
  Report Type: Spontaneous
  Country: US (occurrence: US)
  Receive Date: 20170420
  Receipt Date: 20170613
  Transmission Date: 20170830
  Serious: No
  Sender: FDA-Public Use
  Company Number: US-BIO PRODUCTS LABORATORY LTD-1065556

PATIENT
  Age: 36 Year
  Sex: Female

DRUGS (4)
  1. LYRICA [Concomitant]
     Active Substance: PREGABALIN
  2. GAMMAPLEX [Suspect]
     Active Substance: HUMAN IMMUNOGLOBULIN G
     Route: 042
     Dates: start: 20170309, end: 20170409
  3. FENTANYL. [Concomitant]
     Active Substance: FENTANYL
  4. TRAMADOL. [Concomitant]
     Active Substance: TRAMADOL

REACTIONS (4)
  - Headache [Unknown]
  - Nausea [Unknown]
  - Rash maculo-papular [Unknown]
  - Migraine [Unknown]

NARRATIVE: CASE EVENT DATE: 20170311
